FAERS Safety Report 13773006 (Version 1)
Quarter: 2017Q3

REPORT INFORMATION
  Report Type: Spontaneous
  Country: AU (occurrence: AU)
  Receive Date: 20170720
  Receipt Date: 20170720
  Transmission Date: 20171127
  Serious: Yes (Other)
  Sender: FDA-Public Use
  Company Number: AU-JNJFOC-20170615594

PATIENT
  Age: 39 Year
  Sex: Female
  Weight: 70 kg

DRUGS (1)
  1. INVEGA TRINZA [Suspect]
     Active Substance: PALIPERIDONE PALMITATE
     Indication: PRODUCT USED FOR UNKNOWN INDICATION
     Dosage: DELTOID SITE
     Route: 030
     Dates: start: 20170505

REACTIONS (2)
  - Malaise [Unknown]
  - Persistent depressive disorder [Not Recovered/Not Resolved]

NARRATIVE: CASE EVENT DATE: 20170606
